FAERS Safety Report 12137191 (Version 2)
Quarter: 2017Q1

REPORT INFORMATION
  Report Type: Spontaneous
  Country: US (occurrence: US)
  Receive Date: 20160302
  Receipt Date: 20170301
  Transmission Date: 20170428
  Serious: No
  Sender: FDA-Public Use
  Company Number: US-INSYS THERAPEUTICS, INC-INS201509-000376

PATIENT
  Age: 40 Year
  Sex: Male
  Weight: 139.7 kg

DRUGS (7)
  1. LISINOPRIL. [Concomitant]
     Active Substance: LISINOPRIL
     Indication: BLOOD PRESSURE ABNORMAL
  2. OXYCONTIN [Concomitant]
     Active Substance: OXYCODONE HYDROCHLORIDE
  3. SUBSYS [Suspect]
     Active Substance: FENTANYL
     Indication: PAIN
     Dates: start: 201507
  4. OXYCONTIN [Concomitant]
     Active Substance: OXYCODONE HYDROCHLORIDE
     Indication: PAIN MANAGEMENT
  5. SUBSYS [Suspect]
     Active Substance: FENTANYL
     Dates: start: 20160112
  6. VICTOZA [Concomitant]
     Active Substance: LIRAGLUTIDE
     Indication: DIABETES MELLITUS
  7. OXYCODONE [Concomitant]
     Active Substance: OXYCODONE

REACTIONS (5)
  - Erythema [Not Recovered/Not Resolved]
  - Application site injury [Not Recovered/Not Resolved]
  - Product quality issue [Unknown]
  - Product taste abnormal [Unknown]
  - Accidental exposure to product [Not Recovered/Not Resolved]

NARRATIVE: CASE EVENT DATE: 201508
